FAERS Safety Report 11746240 (Version 1)
Quarter: 2015Q4

REPORT INFORMATION
  Report Type: Spontaneous
  Country: US (occurrence: None)
  Receive Date: 20151116
  Receipt Date: 20151116
  Transmission Date: 20160304
  Serious: Yes (Other)
  Sender: FDA-Public Use
  Company Number: None

PATIENT
  Age: 43 Year
  Sex: Female
  Weight: 68.04 kg

DRUGS (4)
  1. UP AND UP BRAND GUMMY MULTIVITAMIN [Concomitant]
  2. FALMINA [Concomitant]
     Active Substance: ETHINYL ESTRADIOL\LEVONORGESTREL
  3. SOLODYN [Suspect]
     Active Substance: MINOCYCLINE HYDROCHLORIDE
     Indication: LIP INFECTION
     Dosage: 1 PILL
     Route: 048
     Dates: start: 20151027, end: 20151112
  4. AMAZING GRASS GREEN SUPERFOOD [Concomitant]

REACTIONS (7)
  - Chest discomfort [None]
  - Rash [None]
  - Pain [None]
  - Pruritus [None]
  - Musculoskeletal stiffness [None]
  - Urticaria [None]
  - Pain in jaw [None]

NARRATIVE: CASE EVENT DATE: 20151104
